FAERS Safety Report 8144035-4 (Version None)
Quarter: 2012Q1

REPORT INFORMATION
  Report Type: 
  Country: None (occurrence: None)
  Receive Date: 20120217
  Receipt Date: 20120217
  Transmission Date: 20120608
  Serious: Yes (Other)
  Sender: FDA-Public Use
  Company Number: None

PATIENT
  Age: 51 Year
  Sex: Female
  Weight: 68.946 kg

DRUGS (1)
  1. FASTIN [Suspect]
     Indication: WEIGHT DECREASED
     Dosage: 1-2 TABLETS
     Route: 048
     Dates: start: 20120201, end: 20120201

REACTIONS (3)
  - HEART RATE INCREASED [None]
  - HYPERHIDROSIS [None]
  - ABDOMINAL PAIN UPPER [None]
